FAERS Safety Report 20350980 (Version 1)
Quarter: 2022Q1

REPORT INFORMATION
  Report Type: Spontaneous
  Country: FR (occurrence: FR)
  Receive Date: 20220119
  Receipt Date: 20220119
  Transmission Date: 20220423
  Serious: Yes (Hospitalization)
  Sender: FDA-Public Use
  Company Number: None

PATIENT
  Age: 25 Year
  Sex: Male

DRUGS (3)
  1. ALPRAZOLAM [Suspect]
     Active Substance: ALPRAZOLAM
     Indication: Mixed anxiety and depressive disorder
     Dosage: 1 UNK (TOTAL, 3 PLAQUETTES D^ALPRAZOLAM)
     Route: 048
     Dates: start: 20211209, end: 20211209
  2. TRANXENE [Suspect]
     Active Substance: CLORAZEPATE DIPOTASSIUM
     Indication: Mixed anxiety and depressive disorder
     Dosage: 1 UNK (TOTAL, 3 PLAQUETTES DE TRANXENE)
     Route: 048
     Dates: start: 20211209, end: 20211209
  3. LOXAPINE [Suspect]
     Active Substance: LOXAPINE
     Indication: Mixed anxiety and depressive disorder
     Dosage: 1 UNK (TOTAL, 1 PLAQUETTE DE LOXAPAC)
     Route: 048
     Dates: start: 20211209, end: 20211209

REACTIONS (2)
  - Coma [Recovered/Resolved]
  - Tachycardia [Recovered/Resolved]

NARRATIVE: CASE EVENT DATE: 20211209
